FAERS Safety Report 8764411 (Version 2)
Quarter: 2012Q4

REPORT INFORMATION
  Report Type: 
  Country: MX (occurrence: MX)
  Receive Date: 20120831
  Receipt Date: 20121018
  Transmission Date: 20130627
  Serious: Yes (Death, Hospitalization)
  Sender: FDA-Public Use
  Company Number: PHHY2012MX075253

PATIENT
  Sex: Female
  Weight: 1.27 kg

DRUGS (4)
  1. CIPROFLOXACIN [Suspect]
  2. MEROPENEM [Suspect]
  3. VANCOMYCIN [Suspect]
  4. AMIKACIN [Suspect]

REACTIONS (2)
  - Death [Fatal]
  - Fungaemia [Unknown]
